FAERS Safety Report 11181138 (Version 1)
Quarter: 2015Q2

REPORT INFORMATION
  Report Type: Spontaneous
  Country: US (occurrence: None)
  Receive Date: 20150610
  Receipt Date: 20150610
  Transmission Date: 20150821
  Serious: Yes (Other)
  Sender: FDA-Public Use
  Company Number: None

PATIENT
  Age: 57 Year
  Sex: Female

DRUGS (1)
  1. PROLIA [Suspect]
     Active Substance: DENOSUMAB
     Indication: SENILE OSTEOPOROSIS
     Dosage: 6 MONTHS
     Dates: start: 20150605

REACTIONS (3)
  - Pain [None]
  - Bone pain [None]
  - Movement disorder [None]

NARRATIVE: CASE EVENT DATE: 20150608
